FAERS Safety Report 9565704 (Version 2)
Quarter: 2013Q3

REPORT INFORMATION
  Report Type: Report from Study
  Country: ES (occurrence: ES)
  Receive Date: 20130930
  Receipt Date: 20130930
  Transmission Date: 20140515
  Serious: Yes (Hospitalization)
  Sender: FDA-Public Use
  Company Number: ES-ROCHE-1229695

PATIENT
  Age: 74 Year
  Sex: Female

DRUGS (15)
  1. PERTUZUMAB [Suspect]
     Indication: HER-2 POSITIVE BREAST CANCER
     Dosage: DATE OF LAST DOSE PRIOR TO SAE WAS ON 23/MAY/2013.?LOADING DOSE
     Route: 042
     Dates: start: 20130523, end: 20130523
  2. PERTUZUMAB [Suspect]
     Dosage: DATE OF LAST DOSE PRIOR TO SAE WAS ON 23/MAY/2013.
     Route: 042
     Dates: end: 20130618
  3. TRASTUZUMAB [Suspect]
     Indication: HER-2 POSITIVE BREAST CANCER
     Dosage: LAST DOSE PRIOR TO SAE WAS ON 24/MAY/2013
     Route: 042
     Dates: start: 20130524, end: 20130618
  4. ATACAND PLUS [Concomitant]
     Dosage: 16/12.5 MG
     Route: 065
  5. LORAZEPAM [Concomitant]
     Route: 065
     Dates: start: 20130524, end: 20130530
  6. DEXKETOPROFEN [Concomitant]
     Route: 065
     Dates: start: 20130523
  7. METFORMIN [Concomitant]
     Route: 065
  8. CODEINE [Concomitant]
     Route: 065
  9. OMEPRAZOL [Concomitant]
     Route: 065
  10. TARGIN [Concomitant]
     Dosage: 10/5 MG/MG
     Route: 065
     Dates: start: 20130524, end: 20130531
  11. TARGIN [Concomitant]
     Dosage: 10/5 MG/MG
     Route: 065
     Dates: start: 20130529
  12. ACTOCORTIN [Concomitant]
     Route: 065
     Dates: start: 20130524, end: 20130531
  13. BEMIPARIN [Concomitant]
     Route: 065
     Dates: start: 20130525, end: 20130530
  14. EMULIQUEN [Concomitant]
     Route: 065
     Dates: start: 20130529, end: 20130531
  15. FENTANIL [Concomitant]
     Route: 065
     Dates: start: 20130528, end: 20130528

REACTIONS (2)
  - Adverse drug reaction [Recovered/Resolved]
  - Respiratory failure [Recovered/Resolved]
